FAERS Safety Report 7525635-9 (Version None)
Quarter: 2011Q2

REPORT INFORMATION
  Report Type: 
  Country: None (occurrence: None)
  Receive Date: 20110606
  Receipt Date: 20110524
  Transmission Date: 20111010
  Serious: Yes (Hospitalization)
  Sender: FDA-Public Use
  Company Number: PHHY2009LV06824

PATIENT
  Sex: Female
  Weight: 80 kg

DRUGS (1)
  1. ZOLEDRONIC ACID [Suspect]
     Indication: OSTEOPOROSIS
     Dosage: 5 MG/100 ML
     Route: 042
     Dates: start: 20090209

REACTIONS (5)
  - MYALGIA [None]
  - NAUSEA [None]
  - TREMOR [None]
  - VOMITING [None]
  - PYREXIA [None]
